FAERS Safety Report 9385104 (Version 1)
Quarter: 2013Q3

REPORT INFORMATION
  Report Type: Spontaneous
  Country: GB (occurrence: None)
  Receive Date: 20130701
  Receipt Date: 20130701
  Transmission Date: 20140515
  Serious: Yes (Congenital Anomaly, Other)
  Sender: FDA-Public Use
  Company Number: GER/UKI/13/0030244

PATIENT
  Age: 76 Year
  Sex: Male

DRUGS (8)
  1. AMLODIPINE (AMLODIPINE) [Suspect]
     Indication: HYPERTENSION
     Route: 048
     Dates: start: 20130606, end: 20130606
  2. DILTIAZEM [Suspect]
     Indication: HYPERTENSION
     Dosage: 1 IN 1 TOTAL
     Route: 048
     Dates: start: 20130606, end: 20130606
  3. DILTIAZEM [Suspect]
     Indication: SUPRAVENTRICULAR TACHYCARDIA
     Dosage: 1 IN 1 TOTAL
     Route: 048
     Dates: start: 20130606, end: 20130606
  4. BETAHISTINE (BETAHISTINE) [Concomitant]
  5. FRUSEMIDE (FUROSEMIDE) [Concomitant]
  6. RAMPRIL (RAMPRIL) [Concomitant]
  7. SIMVASTATIN (SIMVASTATIN) [Concomitant]
  8. WARFARIN (WARFARIN) [Concomitant]

REACTIONS (3)
  - Renal failure acute [None]
  - Hepatitis [None]
  - Hypotension [None]
